FAERS Safety Report 5063277-8 (Version None)
Quarter: 2006Q3

REPORT INFORMATION
  Report Type: 
  Country: None (occurrence: None)
  Receive Date: 20060703
  Receipt Date: 20060509
  Transmission Date: 20061208
  Serious: No
  Sender: FDA-Public Use
  Company Number: 2006PV013537

PATIENT
  Age: 73 Year
  Sex: Female
  Weight: 84.8226 kg

DRUGS (17)
  1. SYMLIN [Suspect]
     Indication: DIABETES MELLITUS NON-INSULIN-DEPENDENT
     Dosage: 30 MCG;BID;SC
     Route: 058
     Dates: start: 20060508
  2. PEPCID [Concomitant]
  3. ZELNORM [Concomitant]
  4. NIASTAN [Concomitant]
  5. ELMIRON [Concomitant]
  6. FISH OIL [Concomitant]
  7. GLUCOSAMINE [Concomitant]
  8. ASPIRIN [Concomitant]
  9. CHROMIUM [Concomitant]
  10. SPIRONOLACTONE [Concomitant]
  11. LEVOTHYROXINE SODIUM [Concomitant]
  12. VITAMIN B-12 [Concomitant]
  13. ZINC [Concomitant]
  14. MAGNESIUM [Concomitant]
  15. PENICILLIN [Concomitant]
  16. EYE VITAMINS [Concomitant]
  17. PREVACID [Concomitant]

REACTIONS (11)
  - ABDOMINAL PAIN UPPER [None]
  - CHEST DISCOMFORT [None]
  - DYSPNOEA [None]
  - FATIGUE [None]
  - FEELING ABNORMAL [None]
  - GASTROOESOPHAGEAL REFLUX DISEASE [None]
  - HEADACHE [None]
  - HYPERHIDROSIS [None]
  - NAUSEA [None]
  - RASH ERYTHEMATOUS [None]
  - SOMNOLENCE [None]
